FAERS Safety Report 6945351-1 (Version None)
Quarter: 2010Q3

REPORT INFORMATION
  Report Type: 
  Country: None (occurrence: None)
  Receive Date: 20100827
  Receipt Date: 20100818
  Transmission Date: 20110219
  Serious: Yes (Hospitalization)
  Sender: FDA-Public Use
  Company Number: IN-ROCHE-698946

PATIENT
  Sex: Female

DRUGS (14)
  1. PEGINTERFERON ALFA-2A [Suspect]
     Dosage: VARIABLE DOSE
     Route: 058
     Dates: start: 20090319, end: 20100121
  2. PEGINTERFERON ALFA-2A [Suspect]
     Route: 058
     Dates: start: 20100128, end: 20100213
  3. RIBAVIRIN [Suspect]
     Dosage: VARIABLE DOSE
     Route: 048
     Dates: start: 20090319, end: 20091123
  4. RIBAVIRIN [Suspect]
     Route: 048
     Dates: start: 20091124, end: 20100217
  5. ELTROMBOPAG [Suspect]
     Indication: THROMBOCYTOPENIA
     Route: 048
     Dates: start: 20090226, end: 20090318
  6. BLINDED ELTROMBOPAG [Suspect]
     Indication: THROMBOCYTOPENIA
     Route: 048
     Dates: start: 20090319, end: 20090428
  7. BLINDED ELTROMBOPAG [Suspect]
     Route: 048
     Dates: start: 20090429, end: 20090513
  8. BLINDED ELTROMBOPAG [Suspect]
     Route: 048
     Dates: start: 20090514, end: 20100217
  9. RARICAP [Concomitant]
     Dosage: DRUG NAME: RAROCAP
     Dates: start: 20090319, end: 20100326
  10. FOLVITE [Concomitant]
     Dates: start: 20090319, end: 20100326
  11. METHYCOBAL [Concomitant]
     Dates: start: 20100319, end: 20100326
  12. EPOGEN [Concomitant]
     Dates: start: 20091008, end: 20100203
  13. LEVOTHYROXINE SODIUM [Concomitant]
     Dates: start: 20100406
  14. METFORMIN HCL [Concomitant]
     Dates: start: 20100721

REACTIONS (1)
  - PLEUROPERICARDITIS [None]
